FAERS Safety Report 13292057 (Version 4)
Quarter: 2017Q3

REPORT INFORMATION
  Report Type: Spontaneous
  Country: IT (occurrence: IT)
  Receive Date: 20170303
  Receipt Date: 20170823
  Transmission Date: 20171127
  Serious: Yes (Other)
  Sender: FDA-Public Use
  Company Number: IT-ROCHE-1898881

PATIENT
  Age: 58 Year
  Sex: Female

DRUGS (2)
  1. ZELBORAF [Suspect]
     Active Substance: VEMURAFENIB
     Indication: METASTATIC MALIGNANT MELANOMA
     Dosage: ^240 MG BLISTER PACK (AL/AL)^ 56 TABLETS (FILM-COATED TABLET)
     Route: 048
     Dates: start: 20170209, end: 20170220
  2. COTELLIC [Suspect]
     Active Substance: COBIMETINIB
     Indication: METASTATIC MALIGNANT MELANOMA
     Dosage: 20 MG PVC/PVDC BLISTER PACK - 63 (3X21) TABLETS (FILM-COATED TABLET)
     Route: 048
     Dates: start: 20170209, end: 20170220

REACTIONS (2)
  - Laryngeal oedema [Recovered/Resolved]
  - Stevens-Johnson syndrome [Recovered/Resolved]

NARRATIVE: CASE EVENT DATE: 20170220
